FAERS Safety Report 9301667 (Version 1)
Quarter: 2012Q4

REPORT INFORMATION
  Report Type: Spontaneous
  Country: US (occurrence: None)
  Receive Date: 20121109
  Receipt Date: 20121109
  Transmission Date: 20130627
  Serious: Yes (Other)
  Sender: FDA-Public Use
  Company Number: 2012S1000264

PATIENT
  Age: 63 Year
  Sex: Male

DRUGS (3)
  1. CUBICIN [Suspect]
     Indication: ENDOCARDITIS
  2. CUBICIN [Suspect]
     Indication: SEPSIS
  3. CUBICIN [Suspect]
     Indication: BACTEREMIA

REACTIONS (2)
  - Haemolysis [None]
  - Drug hypersensitivity [None]
